FAERS Safety Report 22281549 (Version 2)
Quarter: 2023Q2

REPORT INFORMATION
  Report Type: Spontaneous
  Country: US (occurrence: US)
  Receive Date: 20230504
  Receipt Date: 20230605
  Transmission Date: 20230721
  Serious: No
  Sender: FDA-Public Use
  Company Number: US-LUPIN PHARMACEUTICALS INC.-2023-03057

PATIENT

DRUGS (1)
  1. TRAMADOL HYDROCHLORIDE EXTENDED-RELEASE TABLETS [Suspect]
     Active Substance: TRAMADOL HYDROCHLORIDE
     Indication: Pain
     Dosage: UNK UNK, QD (FEW PILLS AT THE SAME TIME AT NIGHT BEFORE BED)
     Route: 065

REACTIONS (2)
  - Product formulation issue [Unknown]
  - Drug ineffective [Unknown]
